FAERS Safety Report 14628720 (Version 1)
Quarter: 2018Q1

REPORT INFORMATION
  Report Type: Spontaneous
  Country: US (occurrence: US)
  Receive Date: 20180313
  Receipt Date: 20180313
  Transmission Date: 20180509
  Serious: Yes (Other)
  Sender: FDA-Public Use
  Company Number: US-CIPLA LTD.-2018US10340

PATIENT

DRUGS (1)
  1. ZOLEDRONIC ACID [Suspect]
     Active Substance: ZOLEDRONIC ACID
     Indication: METASTASES TO BONE
     Dosage: UNK

REACTIONS (5)
  - Hypocalcaemia [Recovering/Resolving]
  - Metastases to bone [Unknown]
  - Hypophosphataemia [Not Recovered/Not Resolved]
  - Hyperparathyroidism [Recovering/Resolving]
  - Myalgia [Unknown]
